FAERS Safety Report 23938959 (Version 6)
Quarter: 2024Q3

REPORT INFORMATION
  Report Type: Spontaneous
  Country: US (occurrence: US)
  Receive Date: 20240604
  Receipt Date: 20240822
  Transmission Date: 20241016
  Serious: No
  Sender: MERCK
  Company Number: US-009507513-2405USA010091

PATIENT
  Sex: Male
  Weight: 101.6 kg

DRUGS (28)
  1. WINREVAIR [Suspect]
     Active Substance: SOTATERCEPT-CSRK
     Indication: Product used for unknown indication
     Dosage: FIRST DOSE
     Dates: start: 2024
  2. WINREVAIR [Suspect]
     Active Substance: SOTATERCEPT-CSRK
     Dosage: SECOND DOSE
     Dates: start: 2024
  3. WINREVAIR [Suspect]
     Active Substance: SOTATERCEPT-CSRK
     Dosage: THIRD DOSE
     Dates: start: 2024
  4. REMODULIN [Suspect]
     Active Substance: TREPROSTINIL
     Indication: Pulmonary arterial hypertension
     Dosage: 0.035 MICROGRAM PER KILOGRAM
     Route: 041
     Dates: start: 20211214
  5. ATORVASTATIN CALCIUM [Concomitant]
     Active Substance: ATORVASTATIN CALCIUM
  6. METOPROLOL TARTRATE [Concomitant]
     Active Substance: METOPROLOL TARTRATE
  7. SILDENAFIL [Concomitant]
     Active Substance: SILDENAFIL
  8. RAMIPRIL [Concomitant]
     Active Substance: RAMIPRIL
  9. OXYCODONE HYDROCHLORIDE [Concomitant]
     Active Substance: OXYCODONE HYDROCHLORIDE
  10. POTASSIUM CHLORIDE [Concomitant]
     Active Substance: POTASSIUM CHLORIDE
  11. JARDIANCE [Concomitant]
     Active Substance: EMPAGLIFLOZIN
  12. PANTOPRAZOL SODICO SESQUIHIDRATADO [Concomitant]
  13. SERTRALINE HYDROCHLORIDE [Concomitant]
     Active Substance: SERTRALINE HYDROCHLORIDE
  14. AFRIN [Concomitant]
     Active Substance: OXYMETAZOLINE
  15. OPSUMIT [Concomitant]
     Active Substance: MACITENTAN
  16. SPIRONOLACTONE [Concomitant]
     Active Substance: SPIRONOLACTONE
  17. ALPRAZOLAM [Concomitant]
     Active Substance: ALPRAZOLAM
  18. OXYGEN [Concomitant]
     Active Substance: OXYGEN
  19. ASPIRIN [Concomitant]
     Active Substance: ASPIRIN
  20. PROAIR DIGIHALER [Concomitant]
     Active Substance: ALBUTEROL SULFATE
  21. ZINC [Concomitant]
     Active Substance: ZINC
  22. FUROSEMIDE [Concomitant]
     Active Substance: FUROSEMIDE
  23. MODERNA COVID-19 VACCINE [Concomitant]
     Active Substance: ELASOMERAN
  24. JANUVIA [Concomitant]
     Active Substance: SITAGLIPTIN PHOSPHATE
  25. VITAMIN C [Concomitant]
     Active Substance: ASCORBIC ACID
  26. FISH OIL [Concomitant]
     Active Substance: FISH OIL
  27. LOPERAMIDE [Concomitant]
     Active Substance: LOPERAMIDE
  28. CENTRUM SILVER [ASCORBIC ACID;BETACAROTENE;BIOTIN;CALCIUM PHOSPHATE;CH [Concomitant]

REACTIONS (3)
  - Gingival bleeding [Unknown]
  - Headache [Recovered/Resolved]
  - Rash [Unknown]

NARRATIVE: CASE EVENT DATE: 20240101
